FAERS Safety Report 19231463 (Version 3)
Quarter: 2021Q3

REPORT INFORMATION
  Report Type: Spontaneous
  Country: US (occurrence: US)
  Receive Date: 20210507
  Receipt Date: 20210730
  Transmission Date: 20211014
  Serious: Yes (Hospitalization, Other)
  Sender: FDA-Public Use
  Company Number: US-PFIZER INC-2021374831

PATIENT
  Age: 73 Year
  Sex: Female
  Weight: 58.51 kg

DRUGS (9)
  1. DIAZEPAM. [Concomitant]
     Active Substance: DIAZEPAM
     Indication: ANXIETY
     Dosage: 24 MG, 1X/DAY (ONCE A NIGHT)
     Dates: start: 1979
  2. IBRANCE [Suspect]
     Active Substance: PALBOCICLIB
     Indication: BREAST CANCER METASTATIC
     Dosage: 125 MG, 1X/DAY
     Dates: start: 20210323, end: 2021
  3. IBRANCE [Suspect]
     Active Substance: PALBOCICLIB
     Dosage: 125 MG, CYCLIC (125MG ONE TABLET DAILY FOR 3 WEEKS AND THEN OFF FOR ONE WEEK.)
     Dates: start: 20210323
  4. ELAVIL [ALLOPURINOL] [Concomitant]
     Active Substance: ALLOPURINOL
     Dosage: UNK
  5. LETROZOLE. [Concomitant]
     Active Substance: LETROZOLE
     Dosage: 2.5 MG
     Dates: start: 202101
  6. OXYCODONE [Concomitant]
     Active Substance: OXYCODONE
     Indication: MIGRAINE
     Dosage: 10 MG, AS NEEDED (10MG 1 TABLET AS NEEDED)
  7. IBRANCE [Suspect]
     Active Substance: PALBOCICLIB
     Dosage: 125 MG
     Dates: start: 20210504
  8. AMITRIPTYLINE [Concomitant]
     Active Substance: AMITRIPTYLINE
     Dosage: 195 MG, 1X/DAY (ONCE A NIGHT)
  9. FLURAZEPAM DIHYDROCHLORIDE [Concomitant]
     Indication: SLEEP DISORDER
     Dosage: 10 MG, 1X/DAY (ONCE A NIGHT)

REACTIONS (29)
  - Dementia [Unknown]
  - Rash [Not Recovered/Not Resolved]
  - Pruritus [Unknown]
  - Cognitive disorder [Unknown]
  - Asthenia [Recovering/Resolving]
  - Mobility decreased [Unknown]
  - Vertigo [Unknown]
  - Somnolence [Not Recovered/Not Resolved]
  - Malaise [Unknown]
  - Skin lesion [Unknown]
  - Erythema [Unknown]
  - Fibromyalgia [Unknown]
  - Disturbance in attention [Unknown]
  - Pyrexia [Unknown]
  - Fatigue [Recovering/Resolving]
  - Migraine [Unknown]
  - Pain [Unknown]
  - Impaired quality of life [Unknown]
  - Dizziness [Recovering/Resolving]
  - Vaginal discharge [Unknown]
  - Memory impairment [Unknown]
  - Balance disorder [Unknown]
  - Insomnia [Recovering/Resolving]
  - Vision blurred [Unknown]
  - Urinary tract infection [Unknown]
  - Product dose omission issue [Unknown]
  - Cerebrovascular accident [Recovered/Resolved]
  - Neutropenia [Unknown]
  - Decreased appetite [Unknown]

NARRATIVE: CASE EVENT DATE: 2021
